FAERS Safety Report 20741332 (Version 2)
Quarter: 2022Q2

REPORT INFORMATION
  Report Type: Report from Study
  Country: IT (occurrence: IT)
  Receive Date: 20220422
  Receipt Date: 20220503
  Transmission Date: 20220721
  Serious: Yes (Other)
  Sender: FDA-Public Use
  Company Number: IT-SA-2022SA120763

PATIENT
  Age: 69 Year
  Sex: Male

DRUGS (2)
  1. PHENYTOIN SODIUM [Interacting]
     Active Substance: PHENYTOIN SODIUM
     Indication: Epilepsy
     Dosage: 400 MG
  2. WARFARIN SODIUM [Interacting]
     Active Substance: WARFARIN SODIUM
     Indication: Atrial fibrillation
     Dosage: UNK
     Route: 048

REACTIONS (2)
  - Drug interaction [Unknown]
  - Acute myocardial infarction [Unknown]
